FAERS Safety Report 9817985 (Version 1)
Quarter: 2014Q1

REPORT INFORMATION
  Report Type: Spontaneous
  Country: US (occurrence: None)
  Receive Date: 20140110
  Receipt Date: 20140110
  Transmission Date: 20141002
  Serious: Yes (Other)
  Sender: FDA-Public Use
  Company Number: None

PATIENT
  Age: 49 Year
  Sex: Female
  Weight: 61.24 kg

DRUGS (1)
  1. SYMBICORT [Suspect]
     Dosage: INHALE 2 PUFFS TWICE DAILY
     Route: 055

REACTIONS (2)
  - Drug ineffective [None]
  - Product quality issue [None]
